FAERS Safety Report 10662993 (Version 2)
Quarter: 2015Q1

REPORT INFORMATION
  Report Type: Spontaneous
  Country: ES (occurrence: ES)
  Receive Date: 20141218
  Receipt Date: 20150127
  Transmission Date: 20150720
  Serious: Yes (Death)
  Sender: FDA-Public Use
  Company Number: ES-OTSUKA-US-2014-14552

PATIENT

DRUGS (6)
  1. DACOGEN [Suspect]
     Active Substance: DECITABINE
     Indication: ACUTE MYELOID LEUKAEMIA
     Dosage: UNK UNK, DACOGEN IN 2ND CYCLE, IN 3RD TREATMENT FREE WEEK
     Route: 065
     Dates: start: 20141020
  2. CIPROFLOXACIN. [Concomitant]
     Active Substance: CIPROFLOXACIN
     Indication: PRODUCT USED FOR UNKNOWN INDICATION
     Dosage: 500 MG MILLIGRAM(S), QD
     Route: 048
     Dates: start: 20141017
  3. PREDNISONE. [Concomitant]
     Active Substance: PREDNISONE
     Indication: PRODUCT USED FOR UNKNOWN INDICATION
     Dosage: 40 MG MILLIGRAM(S), QD
     Route: 048
     Dates: start: 20140930
  4. OMEPRAZOLE. [Concomitant]
     Active Substance: OMEPRAZOLE
     Indication: PRODUCT USED FOR UNKNOWN INDICATION
     Dosage: 20 MG MILLIGRAM(S), QD
     Route: 048
  5. ACICLOVIR [Concomitant]
     Active Substance: ACYCLOVIR
     Indication: PRODUCT USED FOR UNKNOWN INDICATION
     Dosage: 400 MG MILLIGRAM(S), BID
     Route: 048
     Dates: start: 20141017
  6. POSACONAZOLE [Concomitant]
     Active Substance: POSACONAZOLE
     Indication: PRODUCT USED FOR UNKNOWN INDICATION
     Dosage: 200 MG MILLIGRAM(S), TID
     Route: 048
     Dates: start: 20141017

REACTIONS (1)
  - Pneumonia [Fatal]

NARRATIVE: CASE EVENT DATE: 20141129
